FAERS Safety Report 7017478-X (Version None)
Quarter: 2010Q3

REPORT INFORMATION
  Report Type: 
  Country: None (occurrence: None)
  Receive Date: 20100928
  Receipt Date: 20100921
  Transmission Date: 20110219
  Serious: Yes (Other)
  Sender: FDA-Public Use
  Company Number: AU-PFIZER INC-2010118992

PATIENT
  Sex: Female

DRUGS (1)
  1. XALATAN [Suspect]
     Dosage: UNK
     Dates: start: 20100801

REACTIONS (4)
  - DIPLOPIA [None]
  - EYE DISORDER [None]
  - HEADACHE [None]
  - VISION BLURRED [None]
